FAERS Safety Report 15737053 (Version 3)
Quarter: 2019Q1

REPORT INFORMATION
  Report Type: Spontaneous
  Country: JP (occurrence: JP)
  Receive Date: 20181218
  Receipt Date: 20190307
  Transmission Date: 20190417
  Serious: Yes (Other)
  Sender: FDA-Public Use
  Company Number: JP-ALLERGAN-1857160US

PATIENT
  Sex: Male

DRUGS (7)
  1. BOTOX [Suspect]
     Active Substance: ONABOTULINUMTOXINA
     Dosage: 240 UNITS, SINGLE
     Route: 030
     Dates: start: 20171216, end: 20171216
  2. BOTOX [Suspect]
     Active Substance: ONABOTULINUMTOXINA
     Dosage: 240 UNITS, SINGLE
     Route: 030
     Dates: start: 20170520, end: 20170520
  3. BOTOX [Suspect]
     Active Substance: ONABOTULINUMTOXINA
     Indication: MUSCLE SPASMS
     Dosage: 240 UNITS, SINGLE
     Route: 030
     Dates: start: 20160820, end: 20160820
  4. BOTOX [Suspect]
     Active Substance: ONABOTULINUMTOXINA
     Dosage: 240 UNITS, SINGLE
     Route: 030
     Dates: start: 20170121, end: 20170121
  5. BOTOX [Suspect]
     Active Substance: ONABOTULINUMTOXINA
     Dosage: 350 UNITS, SINGLE
     Route: 030
     Dates: start: 20181117, end: 20181117
  6. BOTOX [Suspect]
     Active Substance: ONABOTULINUMTOXINA
     Dosage: 240 UNITS, SINGLE
     Route: 030
     Dates: start: 20170826, end: 20170826
  7. BOTOX [Suspect]
     Active Substance: ONABOTULINUMTOXINA
     Dosage: 350 UNITS, SINGLE
     Route: 030
     Dates: start: 20180728, end: 20180728

REACTIONS (2)
  - Femur fracture [Recovered/Resolved]
  - Oedema peripheral [Recovering/Resolving]

NARRATIVE: CASE EVENT DATE: 20160919
